FAERS Safety Report 6747080-6 (Version None)
Quarter: 2010Q2

REPORT INFORMATION
  Report Type: 
  Country: None (occurrence: None)
  Receive Date: 20100526
  Receipt Date: 20100517
  Transmission Date: 20101027
  Serious: Yes (Other)
  Sender: FDA-Public Use
  Company Number: 2010SP027611

PATIENT
  Age: 23 Year
  Sex: Female
  Weight: 84 kg

DRUGS (1)
  1. NOVIAL (DESOGESTREL/ETHINYLESTRADIOL /00570801/) [Suspect]
     Indication: CONTRACEPTION
     Dosage: ; PO
     Route: 048

REACTIONS (18)
  - ABDOMINAL DISTENSION [None]
  - ABDOMINAL PAIN [None]
  - ADNEXA UTERI PAIN [None]
  - DRUG DOSE OMISSION [None]
  - DRUG EXPOSURE DURING PREGNANCY [None]
  - ENDOMETRIAL HYPERTROPHY [None]
  - FATIGUE [None]
  - FOOD CRAVING [None]
  - HOT FLUSH [None]
  - HYPERSOMNIA [None]
  - HYPOMENORRHOEA [None]
  - NIPPLE PAIN [None]
  - PREGNANCY ON ORAL CONTRACEPTIVE [None]
  - SOMNOLENCE [None]
  - THIRST [None]
  - TREATMENT NONCOMPLIANCE [None]
  - VAGINAL DISCHARGE [None]
  - VULVOVAGINAL HUMAN PAPILLOMA VIRUS INFECTION [None]
